FAERS Safety Report 9653898 (Version 1)
Quarter: 2013Q4

REPORT INFORMATION
  Report Type: Spontaneous
  Country: US (occurrence: US)
  Receive Date: 20131029
  Receipt Date: 20131029
  Transmission Date: 20140711
  Serious: No
  Sender: FDA-Public Use
  Company Number: US-BIOGENIDEC-2013BI081636

PATIENT
  Age: 37 Year
  Sex: Female

DRUGS (7)
  1. TECFIDERA [Suspect]
     Indication: MULTIPLE SCLEROSIS
     Route: 048
     Dates: start: 20130626, end: 20130709
  2. TECFIDERA [Suspect]
     Indication: MULTIPLE SCLEROSIS
     Route: 048
     Dates: start: 20130710, end: 20130717
  3. ONDANSETRON [Concomitant]
     Route: 048
  4. TRINESSA [Concomitant]
  5. ADVIL [Concomitant]
  6. ZOMIG [Concomitant]
  7. ORTHO TRICYCLEN LO [Concomitant]

REACTIONS (2)
  - Vomiting [Recovered/Resolved]
  - Diarrhoea [Recovered/Resolved]
